FAERS Safety Report 6748947 (Version 5)
Quarter: 2013Q3

REPORT INFORMATION
  Report Type: Spontaneous
  Country: US (occurrence: None)
  Receive Date: 20080825
  Receipt Date: 20130802
  Transmission Date: 20140515
  Serious: Yes (Hospitalization)
  Sender: FDA-Public Use
  Company Number: FABR-1000367

PATIENT
  Age: 52 Year
  Sex: Male
  Weight: 78 kg

DRUGS (6)
  1. FABRAZYME [Suspect]
     Indication: FABRY^S DISEASE
     Dosage: Q2W
     Route: 042
     Dates: start: 20050913
  2. LASIX [Concomitant]
  3. CILOSTAZOL [Concomitant]
  4. CLOPIDOGREL (CLOPIDOGREL) [Concomitant]
  5. CELEXA [Concomitant]
  6. LORTAB [Concomitant]

REACTIONS (9)
  - Peripheral arterial occlusive disease [None]
  - Toe amputation [None]
  - Cellulitis [None]
  - Peripheral ischaemia [None]
  - Extremity necrosis [None]
  - Dry gangrene [None]
  - Blister [None]
  - Lower limb fracture [None]
  - Fall [None]
